FAERS Safety Report 4278192-7 (Version None)
Quarter: 2004Q1

REPORT INFORMATION
  Report Type: 
  Country: None (occurrence: None)
  Receive Date: 20040121
  Receipt Date: 20040115
  Transmission Date: 20041129
  Serious: No
  Sender: FDA-Public Use
  Company Number: 04H-167-0247196-00

PATIENT
  Age: 65 Year
  Sex: Female

DRUGS (3)
  1. BUPIVACAINE HCL [Suspect]
     Indication: ANAESTHESIA
     Dosage: 5 ML, INJECTION
  2. LIDOCAINE HYDROCHLORIDE 2% INJ [Suspect]
     Indication: ANAESTHESIA
     Dosage: 5ML, INJECTION
  3. GINKGO BILOBA [Suspect]
     Indication: DRUG USE FOR UNKNOWN INDICATION
     Dosage: 40 MG, THREE TIMES DAIY, PER ORAL
     Route: 048

REACTIONS (5)
  - ANAESTHETIC COMPLICATION [None]
  - EXOPHTHALMOS [None]
  - EYE PAIN [None]
  - OCULAR RETROBULBAR HAEMORRHAGE [None]
  - VISUAL ACUITY REDUCED [None]
